FAERS Safety Report 9961939 (Version 1)
Quarter: 2014Q1

REPORT INFORMATION
  Report Type: Spontaneous
  Country: US (occurrence: None)
  Receive Date: 20140127
  Receipt Date: 20140127
  Transmission Date: 20141002
  Serious: Yes (Hospitalization)
  Sender: FDA-Public Use
  Company Number: 1181167

PATIENT
  Sex: 0

DRUGS (1)
  1. ACTIVASE [Suspect]
     Indication: CEREBROVASCULAR ACCIDENT

REACTIONS (3)
  - Haemorrhage [None]
  - Blood fibrinogen decreased [None]
  - Product quality issue [None]
